FAERS Safety Report 5958717-3 (Version None)
Quarter: 2008Q4

REPORT INFORMATION
  Report Type: 
  Country: None (occurrence: None)
  Receive Date: 20081119
  Receipt Date: 20081114
  Transmission Date: 20090506
  Serious: Yes (Hospitalization, Other)
  Sender: FDA-Public Use
  Company Number: US-B.I. PHARMACEUTICALS,INC./RIDGEFIELD-2008-BP-17313BP

PATIENT
  Age: 73 Year
  Sex: Male

DRUGS (1)
  1. MIRAPEX [Suspect]
     Indication: RESTLESS LEGS SYNDROME
     Dosage: 1.5MG
     Route: 048
     Dates: start: 19980101

REACTIONS (3)
  - DRUG INEFFECTIVE [None]
  - PROCEDURAL COMPLICATION [None]
  - SPINAL COLUMN STENOSIS [None]
